FAERS Safety Report 8846169 (Version 1)
Quarter: 2012Q4

REPORT INFORMATION
  Report Type: 
  Country: US (occurrence: US)
  Receive Date: 20121017
  Receipt Date: 20121017
  Transmission Date: 20130627
  Serious: Yes (Hospitalization, Other)
  Sender: FDA-Public Use
  Company Number: US-ELI_LILLY_AND_COMPANY-US200910007700

PATIENT
  Age: 62 None
  Sex: Female
  Weight: 107.3 kg

DRUGS (5)
  1. ZYPREXA [Suspect]
     Indication: SCHIZOPHRENIA, PARANOID TYPE
     Dosage: 10 mg, each evening
     Dates: start: 19980513
  2. ZYPREXA [Suspect]
     Dosage: 15 mg, each evening
     Dates: end: 200807
  3. CYMBALTA [Concomitant]
  4. ABILIFY [Concomitant]
  5. CELEXA [Concomitant]

REACTIONS (25)
  - Cardiac failure congestive [Unknown]
  - Diabetic nephropathy [Unknown]
  - Diabetic retinopathy [Unknown]
  - Cerebrovascular accident [Unknown]
  - Gangrene [Unknown]
  - Diabetic retinal oedema [Unknown]
  - Intestinal obstruction [Unknown]
  - Dyslipidaemia [Unknown]
  - Glaucoma [Unknown]
  - Blindness [Unknown]
  - Diabetes mellitus [Unknown]
  - Haemoptysis [Unknown]
  - Viral upper respiratory tract infection [Unknown]
  - Bacteraemia [Unknown]
  - Urinary tract infection [Unknown]
  - Onychomycosis [Unknown]
  - Hypertension [Unknown]
  - Ear infection [Unknown]
  - Abscess [Unknown]
  - Sinusitis [Unknown]
  - Pneumonia [Unknown]
  - Bronchitis [Unknown]
  - Weight increased [Unknown]
  - Oedema peripheral [Unknown]
  - Epistaxis [Unknown]
